FAERS Safety Report 11854381 (Version 1)
Quarter: 2015Q4

REPORT INFORMATION
  Report Type: Spontaneous
  Country: US (occurrence: US)
  Receive Date: 20151221
  Receipt Date: 20151221
  Transmission Date: 20160305
  Serious: Yes (Other)
  Sender: FDA-Public Use
  Company Number: US-ZYDUS-009741

PATIENT
  Age: 78 Year
  Sex: Male

DRUGS (4)
  1. CARVEDILOL/CARVEDILOL HYDROCHLODRIDE [Suspect]
     Active Substance: CARVEDILOL
     Indication: PRODUCT USED FOR UNKNOWN INDICATION
     Route: 065
  2. DOCETAXEL. [Interacting]
     Active Substance: DOCETAXEL
     Indication: CHEMOTHERAPY
     Dosage: 75 MG/M2 EVERY 3 WEEKS (TOTAL DOSE 134MG) AND THEN REDUCED TO 30 MG/M2 WEEKLY (TOTAL DOSE 54MG)
     Route: 065
  3. LEUPRORELIN/LEUPRORELIN ACETATE [Concomitant]
     Active Substance: LEUPROLIDE ACETATE
     Indication: ANTIANDROGEN THERAPY
     Route: 065
  4. DRONEDARONE [Interacting]
     Active Substance: DRONEDARONE
     Indication: PRODUCT USED FOR UNKNOWN INDICATION
     Route: 065

REACTIONS (11)
  - Chemotherapeutic drug level increased [None]
  - Cholestasis [None]
  - Aspartate aminotransferase increased [None]
  - Drug-induced liver injury [None]
  - Alanine aminotransferase increased [None]
  - Cholangitis sclerosing [Not Recovered/Not Resolved]
  - Blood alkaline phosphatase increased [None]
  - Drug interaction [Unknown]
  - Hepatic enzyme increased [Not Recovered/Not Resolved]
  - Bile duct obstruction [None]
  - Hepatic fibrosis [None]
